FAERS Safety Report 22528319 (Version 1)
Quarter: 2023Q2

REPORT INFORMATION
  Report Type: Spontaneous
  Country: US (occurrence: US)
  Receive Date: 20230607
  Receipt Date: 20230607
  Transmission Date: 20230721
  Serious: Yes (Other)
  Sender: FDA-Public Use
  Company Number: US-AUROBINDO-AUR-APL-2023-040033

PATIENT
  Age: 38 Year
  Sex: Female

DRUGS (3)
  1. MIDODRINE HYDROCHLORIDE [Suspect]
     Active Substance: MIDODRINE HYDROCHLORIDE
     Indication: Acute kidney injury
     Dosage: UNK
     Route: 065
  2. ALBUMIN HUMAN [Suspect]
     Active Substance: ALBUMIN HUMAN
     Indication: Acute kidney injury
     Dosage: UNK
     Route: 065
  3. OCTREOTIDE [Suspect]
     Active Substance: OCTREOTIDE
     Indication: Acute kidney injury
     Dosage: UNK
     Route: 065

REACTIONS (1)
  - Drug ineffective [Unknown]
